FAERS Safety Report 19165694 (Version 1)
Quarter: 2021Q2

REPORT INFORMATION
  Report Type: Spontaneous
  Country: US (occurrence: US)
  Receive Date: 20210421
  Receipt Date: 20210421
  Transmission Date: 20210717
  Serious: No
  Sender: FDA-Public Use
  Company Number: US-ZOGENIX INTERNATIONAL LIMITED, A WHOLLY OWNED SUBSIDIARY OF ZOGENIX, INC.-2021ZX000103

PATIENT
  Age: 11 Year
  Sex: Female

DRUGS (1)
  1. FINTEPLA [Suspect]
     Active Substance: FENFLURAMINE
     Indication: TUBEROUS SCLEROSIS COMPLEX
     Route: 048
     Dates: start: 20210122

REACTIONS (3)
  - Off label use [Unknown]
  - Rash [Unknown]
  - Pyrexia [Unknown]
